FAERS Safety Report 8540872-2 (Version None)
Quarter: 2012Q3

REPORT INFORMATION
  Report Type: 
  Country: None (occurrence: None)
  Receive Date: 20120726
  Receipt Date: 20120720
  Transmission Date: 20120928
  Serious: Yes (Other)
  Sender: FDA-Public Use
  Company Number: US-PFIZER INC-2012176285

PATIENT
  Sex: Female
  Weight: 117 kg

DRUGS (13)
  1. EFFEXOR XR [Suspect]
     Dosage: 450 MG, DAILY IN MORNING
     Route: 048
  2. VENLAFAXINE HCL [Suspect]
     Indication: DEPRESSION SUICIDAL
     Dosage: UNK
  3. XANAX [Suspect]
     Indication: MENTAL DISORDER
     Dosage: 0.5MG IN THE EVENING AND 1MG IN THE NIGHT, 2X/DAY
  4. TRAZODONE HYDROCHLORIDE [Suspect]
     Indication: SLEEP DISORDER
     Dosage: 150 MG, DAILY
  5. TYLENOL [Suspect]
     Indication: HEADACHE
     Dosage: UNK
  6. ASPIRIN [Suspect]
     Indication: BLOOD CHOLESTEROL INCREASED
     Dosage: 81 MG, UNK
  7. EFFEXOR XR [Suspect]
     Indication: DEPRESSION SUICIDAL
     Dosage: UNK
     Route: 048
  8. EFFEXOR XR [Suspect]
     Dosage: 300 MG, DAILY
     Route: 048
  9. XANAX [Suspect]
     Indication: SLEEP DISORDER
  10. TYLENOL [Suspect]
     Dosage: 500 MG, DAILY
  11. IBUPROFEN [Suspect]
     Indication: HEADACHE
     Dosage: 800MG OR 1000MG, 4X/DAY
  12. NIASPAN [Suspect]
     Indication: BLOOD CHOLESTEROL INCREASED
     Dosage: 500 MG, DAILY
     Route: 048
     Dates: start: 20120101
  13. SOMA [Concomitant]
     Indication: FIBROMYALGIA
     Dosage: 350 MG, UNK

REACTIONS (10)
  - FRUSTRATION [None]
  - INSOMNIA [None]
  - HEADACHE [None]
  - ANXIETY [None]
  - DRUG INEFFECTIVE [None]
  - PRURITUS [None]
  - PARAESTHESIA [None]
  - BLOOD CHOLESTEROL INCREASED [None]
  - HEAD DISCOMFORT [None]
  - FLUSHING [None]
